FAERS Safety Report 5120698-2 (Version None)
Quarter: 2006Q4

REPORT INFORMATION
  Report Type: 
  Country: None (occurrence: None)
  Receive Date: 20061003
  Receipt Date: 20061003
  Transmission Date: 20070319
  Serious: No
  Sender: FDA-Public Use
  Company Number: None

PATIENT
  Age: 74 Year
  Sex: Male
  Weight: 72 kg

DRUGS (1)
  1. METOPROLOL 25 MG MYLAN [Suspect]
     Indication: HYPERTENSION
     Dosage: 25 MG PO QD
     Route: 048
     Dates: start: 20051006, end: 20051010

REACTIONS (1)
  - BLOOD PRESSURE INCREASED [None]
